FAERS Safety Report 14746463 (Version 9)
Quarter: 2019Q1

REPORT INFORMATION
  Report Type: Report from Study
  Country: GB (occurrence: GB)
  Receive Date: 20180411
  Receipt Date: 20190321
  Transmission Date: 20190417
  Serious: Yes (Hospitalization, Other)
  Sender: FDA-Public Use
  Company Number: GB-ASPEN-GLO2017GB009545

PATIENT
  Age: 72 Year
  Sex: Male

DRUGS (7)
  1. DEXAMETHASONE. [Suspect]
     Active Substance: DEXAMETHASONE
     Dosage: REDUCED DOSE
     Route: 065
  2. WARFARIN [Concomitant]
     Active Substance: WARFARIN
     Indication: ATRIAL FIBRILLATION
     Dosage: UNK
     Route: 065
  3. NINLARO [Suspect]
     Active Substance: IXAZOMIB CITRATE
     Indication: PLASMA CELL MYELOMA
     Dosage: 3 MG
     Route: 048
  4. DEXAMETHASONE. [Suspect]
     Active Substance: DEXAMETHASONE
     Indication: PRODUCT USED FOR UNKNOWN INDICATION
     Dosage: 4 MG, UNK
     Route: 065
  5. LENALIDOMIDE [Suspect]
     Active Substance: LENALIDOMIDE
     Dosage: REDUCED DOSE
     Route: 065
  6. LENALIDOMIDE [Suspect]
     Active Substance: LENALIDOMIDE
     Indication: PRODUCT USED FOR UNKNOWN INDICATION
     Dosage: 10 MG
     Route: 065
  7. NINLARO [Suspect]
     Active Substance: IXAZOMIB CITRATE
     Dosage: REDUCED DOSE
     Route: 065

REACTIONS (30)
  - Nasopharyngitis [Recovering/Resolving]
  - Peripheral swelling [Unknown]
  - Depressed mood [Unknown]
  - Chills [Recovering/Resolving]
  - Spinal cord compression [Unknown]
  - Asthenia [Not Recovered/Not Resolved]
  - Thrombocytopenia [Not Recovered/Not Resolved]
  - Constipation [Unknown]
  - Malaise [Recovering/Resolving]
  - Hyperkalaemia [Unknown]
  - Urinary tract infection [Unknown]
  - Fatigue [Not Recovered/Not Resolved]
  - Contusion [Unknown]
  - Gastroenteritis norovirus [Unknown]
  - Light chain analysis increased [Unknown]
  - Lethargy [Unknown]
  - Productive cough [Unknown]
  - Pain in extremity [Not Recovered/Not Resolved]
  - Rales [Unknown]
  - Hypernatraemia [Unknown]
  - Haemoglobin abnormal [Unknown]
  - Epistaxis [Unknown]
  - Incontinence [Not Recovered/Not Resolved]
  - Confusional state [Unknown]
  - Neutropenia [Unknown]
  - Rash [Unknown]
  - Influenza [Recovering/Resolving]
  - Diarrhoea [Unknown]
  - Dyspnoea exertional [Unknown]
  - Corona virus infection [Recovering/Resolving]

NARRATIVE: CASE EVENT DATE: 20171120
